FAERS Safety Report 6534856-3 (Version None)
Quarter: 2010Q1

REPORT INFORMATION
  Report Type: 
  Country: None (occurrence: None)
  Receive Date: 20100112
  Receipt Date: 20100104
  Transmission Date: 20100710
  Serious: Yes (Hospitalization, Other)
  Sender: FDA-Public Use
  Company Number: PHHY2009AU54098

PATIENT
  Sex: Female

DRUGS (14)
  1. ACLASTA [Suspect]
     Indication: OSTEOPOROSIS
     Dosage: 5 MG/100 ML
     Route: 042
     Dates: start: 20091208
  2. ACLASTA [Suspect]
     Dosage: 5 MG/100 ML
     Route: 042
     Dates: start: 20091208
  3. OXYTROL [Concomitant]
  4. CALCIUM [Concomitant]
     Route: 048
  5. MAGNESIUM [Concomitant]
  6. BUSCOPAN [Concomitant]
     Dosage: 10 MG, TID
     Route: 048
  7. VESICARE [Concomitant]
     Dosage: 10 MG, QD
     Route: 048
  8. AMLODIPINE [Concomitant]
     Dosage: 5 MG, QD
     Route: 048
  9. IMDUR [Concomitant]
     Dosage: 30 MG, QD
     Route: 048
  10. SOMAC [Concomitant]
     Dosage: 40 MG, QD
     Route: 048
  11. LIPIDIL [Concomitant]
  12. PLAVIX [Concomitant]
     Dosage: 75 MG, QD
     Route: 048
  13. CREON [Concomitant]
     Route: 048
  14. OXYCONTIN [Concomitant]
     Dosage: 30 MG, BID
     Route: 048

REACTIONS (1)
  - ACCIDENTAL OVERDOSE [None]
